FAERS Safety Report 5025636-9 (Version None)
Quarter: 2006Q2

REPORT INFORMATION
  Report Type: 
  Country: None (occurrence: None)
  Receive Date: 20060614
  Receipt Date: 20060605
  Transmission Date: 20061013
  Serious: Yes (Hospitalization)
  Sender: FDA-Public Use
  Company Number: US-ABBOTT-06P-163-0335262-00

PATIENT
  Sex: Female

DRUGS (3)
  1. BIAXIN [Suspect]
     Indication: OTITIS MEDIA
     Dates: start: 19980101
  2. CEPHALEXIN MONOHYDRATE [Suspect]
     Indication: STREPTOCOCCAL INFECTION
     Dates: start: 19980101
  3. SALBUTAMOL [Concomitant]
     Indication: DRUG USE FOR UNKNOWN INDICATION

REACTIONS (8)
  - BLINDNESS [None]
  - EYE INJURY [None]
  - LUNG DISORDER [None]
  - MULTI-ORGAN DISORDER [None]
  - PYREXIA [None]
  - RASH [None]
  - STEVENS-JOHNSON SYNDROME [None]
  - TOOTH EROSION [None]
